FAERS Safety Report 5502639-9 (Version None)
Quarter: 2007Q4

REPORT INFORMATION
  Report Type: 
  Country: None (occurrence: None)
  Receive Date: 20071031
  Receipt Date: 20071029
  Transmission Date: 20080405
  Serious: Yes (Hospitalization)
  Sender: FDA-Public Use
  Company Number: US-JNJFOC-20070902868

PATIENT
  Sex: Female
  Weight: 90.72 kg

DRUGS (3)
  1. INVEGA [Suspect]
     Indication: BIPOLAR DISORDER
     Route: 048
  2. LITHIUM [Suspect]
     Indication: BIPOLAR DISORDER
  3. GEODON [Concomitant]
     Indication: BIPOLAR DISORDER

REACTIONS (6)
  - AKATHISIA [None]
  - HYPERPHAGIA [None]
  - INTENTIONAL OVERDOSE [None]
  - NEUROLEPTIC MALIGNANT SYNDROME [None]
  - SUICIDE ATTEMPT [None]
  - WEIGHT INCREASED [None]
